FAERS Safety Report 12313783 (Version 1)
Quarter: 2016Q2

REPORT INFORMATION
  Report Type: Spontaneous
  Country: US (occurrence: None)
  Receive Date: 20160427
  Receipt Date: 20160427
  Transmission Date: 20160815
  Serious: Yes (Other)
  Sender: FDA-Public Use
  Company Number: None

PATIENT
  Age: 17 Year
  Sex: Male
  Weight: 62.6 kg

DRUGS (1)
  1. DIVALPROEX ER 250MG [Suspect]
     Active Substance: DIVALPROEX SODIUM
     Indication: EPILEPSY
     Dates: start: 2008, end: 2010

REACTIONS (4)
  - Seizure [None]
  - Product substitution issue [None]
  - Condition aggravated [None]
  - Therapeutic response changed [None]
